FAERS Safety Report 18650530 (Version 5)
Quarter: 2021Q4

REPORT INFORMATION
  Report Type: Other
  Country: CZ (occurrence: CZ)
  Receive Date: 20201223
  Receipt Date: 20211119
  Transmission Date: 20220303
  Serious: Yes (Other)
  Sender: FDA-Public Use
  Company Number: CZ-002147023-NVSC2020CZ325555

PATIENT
  Age: 61 Year
  Sex: Female

DRUGS (8)
  1. PACLITAXEL [Suspect]
     Active Substance: PACLITAXEL
     Indication: Ovarian cancer stage IV
     Dosage: 3 CYCLICAL
     Route: 065
     Dates: start: 20180803, end: 20181116
  2. PACLITAXEL [Suspect]
     Active Substance: PACLITAXEL
     Dosage: 3 CYCLICAL
     Route: 065
     Dates: start: 20160425, end: 20170216
  3. PACLITAXEL [Suspect]
     Active Substance: PACLITAXEL
     Route: 065
  4. AVASTIN [Suspect]
     Active Substance: BEVACIZUMAB
     Indication: Ovarian cancer stage IV
     Dosage: 3 CYCLICAL
     Route: 065
     Dates: start: 20160425, end: 20170216
  5. AVASTIN [Suspect]
     Active Substance: BEVACIZUMAB
     Route: 065
  6. CARBOPLATIN [Suspect]
     Active Substance: CARBOPLATIN
     Indication: Ovarian cancer stage IV
     Dosage: 3 CYCLICAL
     Route: 065
     Dates: start: 20180803
  7. CARBOPLATIN [Suspect]
     Active Substance: CARBOPLATIN
     Dosage: 3 CYCLICAL
     Route: 065
     Dates: start: 20160425, end: 20170216
  8. CARBOPLATIN [Suspect]
     Active Substance: CARBOPLATIN
     Route: 065

REACTIONS (6)
  - Polyneuropathy [Recovered/Resolved]
  - Ovarian cancer recurrent [Unknown]
  - Hepatic mass [Unknown]
  - Febrile neutropenia [Recovered/Resolved]
  - Fatigue [Unknown]
  - Nausea [Recovered/Resolved]

NARRATIVE: CASE EVENT DATE: 20170216
